FAERS Safety Report 23728215 (Version 1)
Quarter: 2024Q2

REPORT INFORMATION
  Report Type: Spontaneous
  Country: CN (occurrence: CN)
  Receive Date: 20240410
  Receipt Date: 20240410
  Transmission Date: 20240716
  Serious: Yes (Disabling)
  Sender: FDA-Public Use
  Company Number: CN-JNJFOC-20240401441

PATIENT
  Age: 31 Year
  Sex: Male
  Weight: 67 kg

DRUGS (1)
  1. ERLEADA [Suspect]
     Active Substance: APALUTAMIDE
     Indication: Neoplasm prostate
     Route: 048
     Dates: start: 20240302, end: 20240319

REACTIONS (1)
  - Drug-induced liver injury [Recovering/Resolving]
